FAERS Safety Report 5830224-8 (Version None)
Quarter: 2008Q3

REPORT INFORMATION
  Report Type: 
  Country: None (occurrence: None)
  Receive Date: 20080801
  Receipt Date: 20080724
  Transmission Date: 20090109
  Serious: Yes (Death)
  Sender: FDA-Public Use
  Company Number: B0511671B

PATIENT
  Age: 56 Year
  Sex: Female

DRUGS (2)
  1. TYVERB [Suspect]
     Dosage: 1250MG PER DAY
     Route: 048
     Dates: start: 20071207, end: 20080301
  2. XELODA [Suspect]
     Dosage: 1650MG CYCLIC
     Route: 048
     Dates: start: 20071207

REACTIONS (2)
  - DEATH [None]
  - TREATMENT NONCOMPLIANCE [None]
